FAERS Safety Report 6026264-9 (Version None)
Quarter: 2008Q4

REPORT INFORMATION
  Report Type: 
  Country: None (occurrence: None)
  Receive Date: 20081230
  Receipt Date: 20081216
  Transmission Date: 20090506
  Serious: No
  Sender: FDA-Public Use
  Company Number: 005236

PATIENT
  Age: 78 Year
  Sex: Male

DRUGS (9)
  1. PLETAL [Suspect]
     Indication: ARTERIOSCLEROSIS OBLITERANS
     Dosage: 100 MG, BID
     Route: 048
     Dates: start: 20081105, end: 20081130
  2. PERINDOPRIL ERBUMINE [Suspect]
     Dosage: 4 MG, DAILY DOSE
     Route: 048
  3. URINORM (BENZBROMARONE) TABLET [Concomitant]
  4. MARZULENE S (SODIUM AZULENE SULFONATE_L-GLUTAMINE) GRANULE [Concomitant]
  5. TIZANIDINE HCL [Concomitant]
  6. NITRODERM [Concomitant]
  7. VONTROL [Concomitant]
  8. OPALMON (LIMAPROST ALFADEX) [Concomitant]
  9. OLMETEC (OLMESARTAN MEDOXOMIL) [Concomitant]

REACTIONS (3)
  - BUNDLE BRANCH BLOCK RIGHT [None]
  - CARDIAC STRESS TEST ABNORMAL [None]
  - ELECTROCARDIOGRAM QT PROLONGED [None]
